FAERS Safety Report 6771629-0 (Version None)
Quarter: 2010Q2

REPORT INFORMATION
  Report Type: 
  Country: None (occurrence: None)
  Receive Date: 20100616
  Receipt Date: 20100611
  Transmission Date: 20101027
  Serious: Yes (Death, Hospitalization)
  Sender: FDA-Public Use
  Company Number: PHHY2010IT34184

PATIENT
  Sex: Female

DRUGS (9)
  1. TASIGNA [Suspect]
     Indication: CHRONIC MYELOID LEUKAEMIA
     Dosage: 800 MG, QD
     Route: 048
     Dates: start: 20100304, end: 20100311
  2. ENAPREN [Concomitant]
     Dosage: 20 MG, UNK
     Route: 048
  3. CIPROXIN [Concomitant]
     Dosage: 1000 MG, UNK
     Route: 048
  4. NORVASC [Concomitant]
     Dosage: 10 MG, UNK
     Route: 048
  5. LOSEC I.V. [Concomitant]
     Route: 048
  6. LASIX [Concomitant]
     Dosage: 25 MG, UNK
     Route: 048
  7. ARACYTIN [Concomitant]
  8. ONCO-CARBIDE [Concomitant]
  9. PURINETHOL [Concomitant]

REACTIONS (11)
  - ACUTE RESPIRATORY DISTRESS SYNDROME [None]
  - ASTHENIA [None]
  - BONE MARROW FAILURE [None]
  - CEREBRAL HAEMORRHAGE [None]
  - CHRONIC MYELOID LEUKAEMIA [None]
  - DRUG INEFFECTIVE [None]
  - GENERAL PHYSICAL HEALTH DETERIORATION [None]
  - PALLOR [None]
  - PLATELET COUNT DECREASED [None]
  - SPEECH DISORDER [None]
  - VOMITING [None]
